FAERS Safety Report 9435547 (Version 2)
Quarter: 2013Q3

REPORT INFORMATION
  Report Type: Spontaneous
  Country: US (occurrence: None)
  Receive Date: 20130730
  Receipt Date: 20130807
  Transmission Date: 20140515
  Serious: Yes (Other)
  Sender: FDA-Public Use
  Company Number: AUR-APL-2013-06264

PATIENT
  Age: 35 Year
  Sex: Female
  Weight: 113 kg

DRUGS (8)
  1. QUETIAPINE (QUETIAPINE) [Suspect]
     Indication: PRODUCT USED FOR UNKNOWN INDICATION
  2. FENTANYL [Concomitant]
  3. LIDOCAINE [Concomitant]
  4. PROPOFOL [Concomitant]
  5. SUCCINYLCHOLINE (SUXAMETHONIUM CHLORIDE) [Concomitant]
  6. LAMOTRIGINE [Concomitant]
  7. VENLAFAXINE [Concomitant]
  8. MIDAZOLAM [Concomitant]

REACTIONS (1)
  - Hypotension [None]
